FAERS Safety Report 14847837 (Version 1)
Quarter: 2018Q2

REPORT INFORMATION
  Report Type: Spontaneous
  Country: US (occurrence: US)
  Receive Date: 20180418
  Receipt Date: 20180418
  Transmission Date: 20180711
  Serious: Yes (Other)
  Sender: FDA-Public Use
  Company Number: None

PATIENT
  Age: 27 Year
  Sex: Female
  Weight: 54.43 kg

DRUGS (3)
  1. NEXPLANON [Suspect]
     Active Substance: ETONOGESTREL
  2. MELATONIN [Concomitant]
     Active Substance: MELATONIN
  3. NETTLES TEA [Concomitant]

REACTIONS (5)
  - Irritability [None]
  - Mood altered [None]
  - Loss of libido [None]
  - Affect lability [None]
  - Tearfulness [None]

NARRATIVE: CASE EVENT DATE: 20170801
